FAERS Safety Report 11532901 (Version 1)
Quarter: 2015Q3

REPORT INFORMATION
  Report Type: Other
  Country: IT (occurrence: IT)
  Receive Date: 20150921
  Receipt Date: 20150921
  Transmission Date: 20151125
  Serious: Yes (Hospitalization)
  Sender: FDA-Public Use
  Company Number: IT-MYLANLABS-2015M1030888

PATIENT

DRUGS (1)
  1. ZOLEDRONIC ACID MYLAN 4 MG/5 ML CONCENTRATE FOR SOLUTION FOR INFUSION [Suspect]
     Active Substance: ZOLEDRONIC ACID
     Indication: PLASMA CELL MYELOMA
     Dosage: 4 MG, CYCLE
     Route: 042
     Dates: start: 20150827

REACTIONS (2)
  - Osteoarthritis [Unknown]
  - Hyperpyrexia [Unknown]

NARRATIVE: CASE EVENT DATE: 20150827
